FAERS Safety Report 19565118 (Version 3)
Quarter: 2021Q3

REPORT INFORMATION
  Report Type: Spontaneous
  Country: CH (occurrence: IN)
  Receive Date: 20210716
  Receipt Date: 20210924
  Transmission Date: 20211014
  Serious: Yes (Other)
  Sender: FDA-Public Use
  Company Number: IN-ASTELLAS-2021US025883

PATIENT
  Age: 66 Year
  Sex: Male

DRUGS (1)
  1. ISAVUCONAZOLE [Suspect]
     Active Substance: ISAVUCONAZOLE
     Indication: PRODUCT USED FOR UNKNOWN INDICATION
     Route: 048
     Dates: start: 20210226

REACTIONS (5)
  - Osteonecrosis [Unknown]
  - Post procedural complication [Unknown]
  - Underdose [Unknown]
  - Off label use [Unknown]
  - Sphenoid bone dehiscence [Unknown]

NARRATIVE: CASE EVENT DATE: 20210226
